FAERS Safety Report 5816330-2 (Version None)
Quarter: 2008Q3

REPORT INFORMATION
  Report Type: 
  Country: None (occurrence: None)
  Receive Date: 20080716
  Receipt Date: 20080220
  Transmission Date: 20090109
  Serious: Yes (Other)
  Sender: FDA-Public Use
  Company Number: 2008US000606

PATIENT
  Age: 63 Year
  Sex: Female
  Weight: 117.9 kg

DRUGS (8)
  1. ADENOSCAN [Suspect]
     Indication: CARDIAC STRESS TEST
     Dosage: 36 MG, TOTAL DOSE, IV NOS
     Route: 042
     Dates: start: 20071018, end: 20071018
  2. ALLEGRA [Concomitant]
  3. COREG [Concomitant]
  4. PRAVACHOL [Concomitant]
  5. ADVAIR DISKUS 100/50 [Concomitant]
  6. SYNTHROID [Concomitant]
  7. LOTEMAX [Concomitant]
  8. PRILOLSEC [Concomitant]

REACTIONS (1)
  - ATRIOVENTRICULAR BLOCK [None]
